FAERS Safety Report 21245856 (Version 2)
Quarter: 2022Q3

REPORT INFORMATION
  Report Type: Spontaneous
  Country: US (occurrence: US)
  Receive Date: 20220824
  Receipt Date: 20220923
  Transmission Date: 20221027
  Serious: Yes (Other)
  Sender: FDA-Public Use
  Company Number: US-BAUSCH-BL-2022-020305

PATIENT
  Age: 2 Year
  Sex: Male
  Weight: 18.614 kg

DRUGS (2)
  1. DIAZEPAM [Suspect]
     Active Substance: DIAZEPAM
     Indication: Generalised tonic-clonic seizure
     Dosage: 10 MG AS NEEDED
     Route: 054
  2. DIAZEPAM [Suspect]
     Active Substance: DIAZEPAM
     Dosage: 10 MG AS NEEDED
     Route: 054

REACTIONS (2)
  - Device breakage [Unknown]
  - Product preparation error [Unknown]
